FAERS Safety Report 8611422-7 (Version None)
Quarter: 2012Q3

REPORT INFORMATION
  Report Type: 
  Country: None (occurrence: None)
  Receive Date: 20120822
  Receipt Date: 20120813
  Transmission Date: 20120928
  Serious: Yes (Other)
  Sender: FDA-Public Use
  Company Number: US-ASTRAZENECA-2012SE57303

PATIENT
  Age: 26 Year
  Sex: Male

DRUGS (3)
  1. SYMBICORT [Suspect]
     Route: 055
  2. NEXIUM [Concomitant]
     Route: 048
  3. PAXIL [Concomitant]
     Route: 048

REACTIONS (1)
  - ANAPHYLACTIC REACTION [None]
